FAERS Safety Report 8181761-5 (Version None)
Quarter: 2012Q1

REPORT INFORMATION
  Report Type: 
  Country: None (occurrence: None)
  Receive Date: 20120302
  Receipt Date: 20111017
  Transmission Date: 20120608
  Serious: Yes (Other)
  Sender: FDA-Public Use
  Company Number: US-AMGEN-USASP2011046879

PATIENT
  Sex: Female
  Weight: 53.061 kg

DRUGS (8)
  1. RANITIDINE HCL [Concomitant]
  2. DEXAMETHASONE SODIUM PHOSPHATE [Concomitant]
  3. TREANDA [Concomitant]
     Indication: CHRONIC LYMPHOCYTIC LEUKAEMIA
     Dosage: 140 MG, Q3WK
     Route: 042
     Dates: start: 20110510
  4. BENADRYL [Concomitant]
  5. PALONOSETRON HYDROCHLORIDE [Concomitant]
  6. NPLATE [Suspect]
     Indication: CHRONIC LYMPHOCYTIC LEUKAEMIA
     Dates: start: 20110510, end: 20110629
  7. NEULASTA [Concomitant]
  8. RITUXIMAB [Concomitant]
     Indication: CHRONIC LYMPHOCYTIC LEUKAEMIA
     Dosage: 580 MG, Q3WK
     Route: 042
     Dates: start: 20110510

REACTIONS (1)
  - DRUG INEFFECTIVE [None]
